FAERS Safety Report 6603957-3 (Version None)
Quarter: 2010Q1

REPORT INFORMATION
  Report Type: 
  Country: None (occurrence: None)
  Receive Date: 20100226
  Receipt Date: 20090326
  Transmission Date: 20100710
  Serious: No
  Sender: FDA-Public Use
  Company Number: A0775640A

PATIENT
  Age: 58 Year
  Sex: Female

DRUGS (12)
  1. LAMICTAL CD [Suspect]
     Indication: BIPOLAR DISORDER
     Dosage: 125MG PER DAY
     Route: 048
     Dates: start: 20090201
  2. ABILIFY [Concomitant]
  3. LEXAPRO [Concomitant]
  4. TOPAMAX [Concomitant]
  5. KLONOPIN [Concomitant]
  6. ENULOSE [Concomitant]
  7. POTASSIUM CITRATE [Concomitant]
  8. PLAQUENIL [Concomitant]
  9. VITAMIN D CALCIUM [Concomitant]
  10. ELMIRON [Concomitant]
  11. DOXAZOSIN MESYLATE [Concomitant]
  12. CRYSTALLINE VIT B12 INJ [Concomitant]

REACTIONS (1)
  - RASH PAPULAR [None]
